FAERS Safety Report 16681884 (Version 2)
Quarter: 2019Q4

REPORT INFORMATION
  Report Type: Spontaneous
  Country: KR (occurrence: KR)
  Receive Date: 20190808
  Receipt Date: 20191023
  Transmission Date: 20200122
  Serious: Yes (Hospitalization, Other)
  Sender: FDA-Public Use
  Company Number: KR-INVENTIA-000308

PATIENT
  Age: 68 Year
  Sex: Male

DRUGS (5)
  1. GLIMEPIRIDE. [Concomitant]
     Active Substance: GLIMEPIRIDE
     Indication: DIABETES MELLITUS
  2. LINAGLIPTIN [Concomitant]
     Active Substance: LINAGLIPTIN
     Indication: DIABETES MELLITUS
  3. ACETYLSALICYLIC ACID [Concomitant]
     Active Substance: ASPIRIN
  4. METFORMIN [Suspect]
     Active Substance: METFORMIN HYDROCHLORIDE
     Indication: DIABETES MELLITUS
  5. AMLODIPINE/TELMISARTAN [Concomitant]
     Indication: HYPERTENSION
     Dosage: TELMISARTAN 80 MG/AMLODIPINE 5 MG ONCE A DAY

REACTIONS (3)
  - Blindness transient [Recovered/Resolved]
  - Renal failure [Unknown]
  - Lactic acidosis [Recovered/Resolved]
